FAERS Safety Report 19861316 (Version 1)
Quarter: 2021Q3

REPORT INFORMATION
  Report Type: Spontaneous
  Country: RU (occurrence: RU)
  Receive Date: 20210920
  Receipt Date: 20210920
  Transmission Date: 20211014
  Serious: Yes (Other)
  Sender: FDA-Public Use
  Company Number: RU-GILEAD-2021-0548902

PATIENT
  Age: 31 Year
  Sex: Female
  Weight: 77 kg

DRUGS (7)
  1. UTROGESTAN [Concomitant]
     Active Substance: PROGESTERONE
     Indication: PROPHYLAXIS
     Dosage: 200 MG, BID
     Route: 067
     Dates: start: 20210810
  2. VEKLURY [Suspect]
     Active Substance: REMDESIVIR
     Dosage: 100 MG, ONCE
     Route: 042
     Dates: start: 20210812, end: 20210812
  3. VEKLURY [Suspect]
     Active Substance: REMDESIVIR
     Indication: COVID-19
     Dosage: 200 MG, UNK
     Route: 042
     Dates: start: 20210811, end: 20210811
  4. ACTEMRA [Concomitant]
     Active Substance: TOCILIZUMAB
     Indication: COVID-19
     Dosage: 400 MG, ONCE
     Route: 041
     Dates: start: 20210811, end: 20210811
  5. CLENIX [Concomitant]
     Indication: PROPHYLAXIS
     Dosage: 0,4 IU, ONCE
     Route: 058
     Dates: start: 20210810
  6. PARACETAMOL [Concomitant]
     Active Substance: ACETAMINOPHEN
     Indication: COVID-19
     Dosage: 1000 MG, ONCE
     Route: 041
     Dates: start: 20210810, end: 20210812
  7. SULTASIN [Concomitant]
     Active Substance: AMPICILLIN SODIUM\SULBACTAM SODIUM
     Indication: PNEUMONIA
     Dosage: 1500 MG, TID
     Route: 065
     Dates: start: 20210811, end: 20210816

REACTIONS (3)
  - Abdominal pain upper [Recovering/Resolving]
  - Nausea [Recovering/Resolving]
  - Maternal exposure during pregnancy [Not Recovered/Not Resolved]

NARRATIVE: CASE EVENT DATE: 20210812
